FAERS Safety Report 7331706-2 (Version None)
Quarter: 2011Q1

REPORT INFORMATION
  Report Type: 
  Country: None (occurrence: None)
  Receive Date: 20110304
  Receipt Date: 20110222
  Transmission Date: 20110831
  Serious: Yes (Hospitalization)
  Sender: FDA-Public Use
  Company Number: MX-JNJFOC-20110208589

PATIENT
  Sex: Female
  Weight: 104 kg

DRUGS (10)
  1. FOLIC ACID [Concomitant]
     Route: 048
  2. GOLIMUMAB [Suspect]
     Indication: RHEUMATOID ARTHRITIS
     Route: 058
  3. METHOTREXATE [Suspect]
     Indication: RHEUMATOID ARTHRITIS
     Route: 048
  4. DICLOFENAC [Concomitant]
     Route: 048
  5. GOLIMUMAB [Suspect]
     Route: 058
  6. CALTRATE-D [Concomitant]
     Route: 048
  7. PLACEBO [Suspect]
     Indication: RHEUMATOID ARTHRITIS
     Route: 048
  8. NORFLEX PLUS (MEXICO) [Concomitant]
     Route: 048
  9. VALSARTAN [Concomitant]
     Route: 048
  10. METHOTREXATE [Concomitant]
     Route: 048

REACTIONS (1)
  - DYSFUNCTIONAL UTERINE BLEEDING [None]
